FAERS Safety Report 7057634-8 (Version None)
Quarter: 2010Q4

REPORT INFORMATION
  Report Type: 
  Country: None (occurrence: None)
  Receive Date: 20101022
  Receipt Date: 20101015
  Transmission Date: 20110411
  Serious: Yes (Other)
  Sender: FDA-Public Use
  Company Number: NO-ROCHE-734400

PATIENT
  Sex: Male

DRUGS (1)
  1. ROACTEMRA [Suspect]
     Route: 042
     Dates: start: 20091201, end: 20100701

REACTIONS (1)
  - NIGHTMARE [None]
